FAERS Safety Report 23710890 (Version 1)
Quarter: 2024Q2

REPORT INFORMATION
  Report Type: Spontaneous
  Country: ES (occurrence: ES)
  Receive Date: 20240405
  Receipt Date: 20240405
  Transmission Date: 20240716
  Serious: Yes (Other)
  Sender: FDA-Public Use
  Company Number: ES-AEMPS-1501118

PATIENT
  Age: 63 Year
  Sex: Female

DRUGS (19)
  1. ACETAMINOPHEN [Interacting]
     Active Substance: ACETAMINOPHEN
     Indication: Product used for unknown indication
     Dosage: 1 GRAM, 3 TIMES A DAY
     Route: 048
     Dates: start: 20230928, end: 20231010
  2. ERTAPENEM [Interacting]
     Active Substance: ERTAPENEM
     Indication: Haemophagocytic lymphohistiocytosis
     Dosage: 1 GRAM
     Route: 042
     Dates: start: 20231010, end: 20231013
  3. ERTAPENEM [Interacting]
     Active Substance: ERTAPENEM
     Indication: Angiocentric lymphoma
  4. METHOTREXATE [Interacting]
     Active Substance: METHOTREXATE
     Indication: Haemophagocytic lymphohistiocytosis
     Dosage: 2250 MILLIGRAM, FOUR TIMES/DAY
     Route: 042
     Dates: start: 20231014, end: 20231014
  5. METHOTREXATE [Interacting]
     Active Substance: METHOTREXATE
     Indication: Angiocentric lymphoma
  6. FLUCONAZOLE [Interacting]
     Active Substance: FLUCONAZOLE
     Indication: Haemophagocytic lymphohistiocytosis
     Dosage: 100 MILLIGRAM, ONCE A DAY
     Route: 048
     Dates: start: 20231101, end: 20231109
  7. FLUCONAZOLE [Interacting]
     Active Substance: FLUCONAZOLE
     Indication: Angiocentric lymphoma
  8. CISPLATIN [Interacting]
     Active Substance: CISPLATIN
     Indication: Haemophagocytic lymphohistiocytosis
     Dosage: 30 MILLIGRAM, ONCE A DAY
     Route: 042
     Dates: start: 20231116
  9. CISPLATIN [Interacting]
     Active Substance: CISPLATIN
     Indication: Angiocentric lymphoma
  10. AMOXICILLIN\CLAVULANIC ACID [Interacting]
     Active Substance: AMOXICILLIN\CLAVULANIC ACID
     Indication: Haemophagocytic lymphohistiocytosis
     Dosage: 1 GRAM, 3 TIMES A DAY
     Route: 042
     Dates: start: 20230928, end: 20231009
  11. AMOXICILLIN\CLAVULANIC ACID [Interacting]
     Active Substance: AMOXICILLIN\CLAVULANIC ACID
     Indication: Angiocentric lymphoma
  12. FLUCONAZOLE [Interacting]
     Active Substance: FLUCONAZOLE
     Indication: Angiocentric lymphoma
     Dosage: 100 MILLIGRAM, ONCE A DAY
     Route: 042
     Dates: start: 20231012, end: 20231014
  13. FLUCONAZOLE [Interacting]
     Active Substance: FLUCONAZOLE
     Indication: Haemophagocytic lymphohistiocytosis
  14. GEMCITABINE [Interacting]
     Active Substance: GEMCITABINE
     Indication: Haemophagocytic lymphohistiocytosis
     Dosage: 1200 MILLIGRAM, EVERY WEEK
     Route: 042
     Dates: start: 20231115, end: 20231122
  15. GEMCITABINE [Interacting]
     Active Substance: GEMCITABINE
     Indication: Angiocentric lymphoma
     Dosage: 1200 MILLIGRAM, ONCE A DAY
     Route: 042
     Dates: start: 20231226
  16. IFOSFAMIDE [Interacting]
     Active Substance: IFOSFAMIDE
     Indication: Haemophagocytic lymphohistiocytosis
     Dosage: 1688 MILLIGRAM, ONCE A DAY
     Route: 042
     Dates: start: 20231015
  17. IFOSFAMIDE [Interacting]
     Active Substance: IFOSFAMIDE
     Indication: Angiocentric lymphoma
  18. ETOPOSIDE [Interacting]
     Active Substance: ETOPOSIDE
     Indication: Angiocentric lymphoma
     Dosage: 75 MILLIGRAM, ONCE A DAY
     Route: 042
     Dates: start: 20231015
  19. ETOPOSIDE [Interacting]
     Active Substance: ETOPOSIDE
     Indication: Haemophagocytic lymphohistiocytosis

REACTIONS (3)
  - Coagulopathy [Recovered/Resolved]
  - Hyperbilirubinaemia [Recovered/Resolved]
  - Mixed liver injury [Recovered/Resolved]

NARRATIVE: CASE EVENT DATE: 20231013
